FAERS Safety Report 8065352-2 (Version None)
Quarter: 2012Q1

REPORT INFORMATION
  Report Type: 
  Country: None (occurrence: None)
  Receive Date: 20120124
  Receipt Date: 20120116
  Transmission Date: 20120608
  Serious: Yes (Hospitalization)
  Sender: FDA-Public Use
  Company Number: US-BAYER-2011-042065

PATIENT
  Age: 29 Year
  Sex: Female
  Weight: 102.49 kg

DRUGS (4)
  1. PROZAC [Concomitant]
     Indication: DEPRESSION
  2. YASMIN [Suspect]
     Indication: CONTRACEPTION
     Dosage: UNK
     Dates: start: 20060829, end: 20070503
  3. IBUPROFEN [Concomitant]
     Dosage: 84 MG, UNK
     Dates: start: 19910101
  4. CYMBALTA [Concomitant]
     Indication: DEPRESSION

REACTIONS (8)
  - INJURY [None]
  - DYSPNOEA [None]
  - PAIN [None]
  - PULMONARY EMBOLISM [None]
  - ANXIETY [None]
  - PAIN IN EXTREMITY [None]
  - DEEP VEIN THROMBOSIS [None]
  - EMOTIONAL DISTRESS [None]
